FAERS Safety Report 22533206 (Version 4)
Quarter: 2023Q4

REPORT INFORMATION
  Report Type: Spontaneous
  Country: US (occurrence: US)
  Receive Date: 20230607
  Receipt Date: 20231109
  Transmission Date: 20240110
  Serious: Yes (Hospitalization)
  Sender: FDA-Public Use
  Company Number: US-ALKERMES INC.-ALK-2023-002261

PATIENT
  Age: 58 Year
  Sex: Female
  Weight: 94.785 kg

DRUGS (5)
  1. LYBALVI [Suspect]
     Active Substance: OLANZAPINE\SAMIDORPHAN L-MALATE
     Indication: Schizoaffective disorder bipolar type
     Dosage: 10/10 MILLIGRAM, QD
     Dates: start: 20230201
  2. LYBALVI [Suspect]
     Active Substance: OLANZAPINE\SAMIDORPHAN L-MALATE
     Dosage: 10/10 MILLIGRAM, QD (DOSE DECREASED)
     Route: 048
     Dates: start: 20211208
  3. LYBALVI [Suspect]
     Active Substance: OLANZAPINE\SAMIDORPHAN L-MALATE
     Dosage: 15/10 MILLIGRAM, QD
     Route: 048
     Dates: start: 20211027, end: 20211208
  4. LITHIUM [Concomitant]
     Active Substance: LITHIUM
     Indication: Bipolar disorder
     Dosage: 150 MILLIGRAM, QHS
     Route: 048
     Dates: start: 20120924
  5. LITHOBID [Concomitant]
     Active Substance: LITHIUM CARBONATE
     Indication: Bipolar disorder
     Dosage: 300 MILLIGRAM, BID
     Route: 048
     Dates: start: 20120924

REACTIONS (3)
  - Skin ulcer [Recovering/Resolving]
  - Hypersomnia [Recovered/Resolved]
  - Off label use [Recovered/Resolved]

NARRATIVE: CASE EVENT DATE: 20211027
